FAERS Safety Report 6576958-1 (Version None)
Quarter: 2010Q1

REPORT INFORMATION
  Report Type: 
  Country: None (occurrence: None)
  Receive Date: 20100210
  Receipt Date: 20090128
  Transmission Date: 20100710
  Serious: Yes (Other)
  Sender: FDA-Public Use
  Company Number: FR-JNJFOC-20090106685

PATIENT
  Age: 71 Year
  Sex: Male

DRUGS (11)
  1. OFLOCET [Suspect]
     Indication: BONE MARROW FAILURE
     Route: 042
  2. OFLOCET [Suspect]
     Indication: PYREXIA
     Route: 042
  3. ZAVEDOS [Suspect]
     Indication: MYELOID LEUKAEMIA
     Dosage: 80 MG/M**2
     Route: 042
  4. ARACYTINE [Suspect]
     Indication: MYELOID LEUKAEMIA
     Dosage: 100 MG/M**2
     Route: 042
  5. ROCEPHIN [Concomitant]
     Indication: PYREXIA
     Route: 042
  6. TIENAM [Concomitant]
     Indication: PYREXIA
     Route: 042
  7. VANCOMYCIN HCL [Concomitant]
     Indication: PYREXIA
     Route: 042
  8. KARDEGIC [Concomitant]
     Route: 048
  9. NEBILOX [Concomitant]
     Route: 048
  10. ADANCOR [Concomitant]
     Route: 048
  11. XATRAL [Concomitant]
     Route: 048

REACTIONS (3)
  - ATRIAL FIBRILLATION [None]
  - STEVENS-JOHNSON SYNDROME [None]
  - TENDON DISORDER [None]
